FAERS Safety Report 4921317-8 (Version None)
Quarter: 2006Q1

REPORT INFORMATION
  Report Type: 
  Country: None (occurrence: None)
  Receive Date: 20060221
  Receipt Date: 20060213
  Transmission Date: 20060701
  Serious: Yes (Disabling)
  Sender: FDA-Public Use
  Company Number: 2006022494

PATIENT
  Age: 58 Year
  Sex: Female

DRUGS (6)
  1. LYRICA [Suspect]
     Indication: NEURALGIA
     Dosage: 2 IN 1 D, ORAL
     Route: 048
     Dates: start: 20060121
  2. ACETAMINOPHEN [Concomitant]
  3. TEMAZEPAM [Concomitant]
  4. BACLOFEN [Concomitant]
  5. CODEINE (CODEINE) [Concomitant]
  6. OXYCONTIN [Concomitant]

REACTIONS (2)
  - DYSSTASIA [None]
  - MUSCULAR WEAKNESS [None]
